FAERS Safety Report 4536787-7 (Version None)
Quarter: 2004Q4

REPORT INFORMATION
  Report Type: 
  Country: None (occurrence: None)
  Receive Date: 20041220
  Receipt Date: 20041210
  Transmission Date: 20050328
  Serious: Yes (Other)
  Sender: FDA-Public Use
  Company Number: 2004-12-0441

PATIENT
  Age: 17 Year
  Sex: Female

DRUGS (16)
  1. GENTAMICIN SULFATE [Suspect]
     Indication: PSEUDOMONAS INFECTION
     Dosage: 80MG INTRAVENOUS
     Route: 042
     Dates: start: 20041022
  2. TAZOBAC             (PIPERACILLIN/TAZOBACTAM) INJECTABLE [Concomitant]
     Route: 042
  3. BRUFEN TABLETS [Concomitant]
  4. ZOLOFT [Concomitant]
  5. SIRDALUD CAPSULES [Concomitant]
  6. TRAMAL CAPSULES [Concomitant]
  7. NEXIUM [Concomitant]
  8. NEURONTIN [Concomitant]
  9. RIVOTRIL TABLETS [Concomitant]
  10. MST TABLETS [Concomitant]
  11. DAFALGAN TABLETS [Concomitant]
  12. TEMESTA TABLETS [Concomitant]
  13. BACTRIM [Concomitant]
  14. FRAXIPARINE INJECTABLE [Concomitant]
  15. BENERVA TABLETS [Concomitant]
  16. BECOZYME C FORTE [Concomitant]

REACTIONS (1)
  - PYREXIA [None]
